FAERS Safety Report 7295338-7 (Version None)
Quarter: 2011Q1

REPORT INFORMATION
  Report Type: 
  Country: None (occurrence: None)
  Receive Date: 20110211
  Receipt Date: 20110211
  Transmission Date: 20110831
  Serious: Yes (Other)
  Sender: FDA-Public Use
  Company Number: None

PATIENT
  Sex: Male
  Weight: 90.9 kg

DRUGS (2)
  1. GEMFIBROZIL [Suspect]
     Indication: BLOOD CHOLESTEROL INCREASED
     Dosage: 600MG TWICE DAILY
  2. MULTI-VITAMINS [Concomitant]

REACTIONS (2)
  - GINGIVAL RECESSION [None]
  - GINGIVAL BLEEDING [None]
